FAERS Safety Report 10210531 (Version 1)
Quarter: 2014Q2

REPORT INFORMATION
  Report Type: Spontaneous
  Country: US (occurrence: None)
  Receive Date: 20140528
  Receipt Date: 20140528
  Transmission Date: 20141212
  Serious: Yes (Life-Threatening, Hospitalization)
  Sender: FDA-Public Use
  Company Number: 2014P1004265

PATIENT
  Age: 36 Year
  Sex: Female

DRUGS (2)
  1. PROPANOLOL [Suspect]
  2. VERAPAMIL [Suspect]

REACTIONS (10)
  - Hypotension [None]
  - Blood pressure systolic decreased [None]
  - Bradycardia [None]
  - Electrocardiogram QRS complex prolonged [None]
  - Cardiac arrest [None]
  - Aspartate aminotransferase increased [None]
  - Alanine aminotransferase increased [None]
  - Acute respiratory distress syndrome [None]
  - Encephalopathy [None]
  - Toxicity to various agents [None]
